FAERS Safety Report 24349964 (Version 2)
Quarter: 2024Q3

REPORT INFORMATION
  Report Type: Spontaneous
  Country: US (occurrence: US)
  Receive Date: 20240923
  Receipt Date: 20240927
  Transmission Date: 20241017
  Serious: Yes (Other)
  Sender: NOVARTIS
  Company Number: US-002147023-NVSC2024US184854

PATIENT
  Age: 40 Year
  Sex: Female

DRUGS (1)
  1. VALSARTAN [Suspect]
     Active Substance: VALSARTAN
     Indication: Product used for unknown indication
     Dosage: UNK
     Route: 065

REACTIONS (17)
  - Syncope [Unknown]
  - Hypokalaemia [Unknown]
  - Atrial fibrillation [Unknown]
  - Nasopharyngitis [Unknown]
  - Balance disorder [Unknown]
  - Malaise [Unknown]
  - Dizziness [Unknown]
  - Oropharyngeal pain [Unknown]
  - Blood pressure diastolic decreased [Unknown]
  - Hypertension [Unknown]
  - Drug ineffective [Unknown]
  - Feeling abnormal [Unknown]
  - Illness [Unknown]
  - Renal pain [Unknown]
  - Cold sweat [Unknown]
  - Dyspnoea [Unknown]
  - Tachycardia [Unknown]
